FAERS Safety Report 4424055-3 (Version None)
Quarter: 2004Q3

REPORT INFORMATION
  Report Type: 
  Country: None (occurrence: None)
  Receive Date: 20040806
  Receipt Date: 20040723
  Transmission Date: 20050211
  Serious: Yes (Hospitalization)
  Sender: FDA-Public Use
  Company Number: 6009779

PATIENT
  Age: 82 Year
  Sex: Female

DRUGS (7)
  1. CONCOR 5 PLUS [Suspect]
     Indication: HYPERTENSION
     Dosage: 0,5 DOSAGE ORAL
     Route: 048
  2. DIGITOXIN               (DIGOTOXIN) [Suspect]
     Indication: ATRIAL FIBRILLATION
     Dosage: 0.0700 MG ORAL
     Route: 048
  3. ACETYLSALICYLIC ACID SRT [Concomitant]
     Route: 048
  4. RAMIPRIL [Concomitant]
     Route: 048
  5. ISCOVER                               (CLOPIDOGREL SULFATE) [Concomitant]
  6. THYREOTOM FORTE                     (LEVOTHYROXINE, LIOTHYRONINE) [Concomitant]
  7. TRIAMPUR COMPOSITION            (HYDROCHLOROTHIAZIDE, TRIAMTERENE) [Concomitant]

REACTIONS (6)
  - ARTERIOSCLEROSIS [None]
  - ATRIAL FIBRILLATION [None]
  - BLOOD PRESSURE SYSTOLIC INCREASED [None]
  - BRADYARRHYTHMIA [None]
  - SYNCOPE [None]
  - VENTRICULAR ARRHYTHMIA [None]
